FAERS Safety Report 7810424-8 (Version None)
Quarter: 2011Q4

REPORT INFORMATION
  Report Type: 
  Country: None (occurrence: None)
  Receive Date: 20111012
  Receipt Date: 20111005
  Transmission Date: 20120403
  Serious: Yes (Hospitalization, Disabling, Other)
  Sender: FDA-Public Use
  Company Number: US-MERCK-1102USA00531

PATIENT
  Age: 54 Year
  Sex: Female
  Weight: 62 kg

DRUGS (17)
  1. FOSAMAX [Suspect]
     Indication: OSTEOPOROSIS
     Route: 048
     Dates: start: 19980514, end: 20101018
  2. FORTAZ [Concomitant]
     Route: 065
  3. FOSAMAX [Suspect]
     Indication: OSTEOPENIA
     Route: 048
     Dates: start: 19980514, end: 20101018
  4. EVISTA [Concomitant]
     Indication: OSTEOPOROSIS
     Route: 048
     Dates: start: 19950101, end: 19990415
  5. ALENDRONATE SODIUM [Suspect]
     Indication: OSTEOPENIA
     Route: 048
     Dates: start: 20080312, end: 20101001
  6. FOSAMAX [Suspect]
     Route: 048
     Dates: start: 19980514, end: 20080301
  7. FOSAMAX [Suspect]
     Route: 048
     Dates: start: 20020618, end: 20101018
  8. FOSAMAX [Suspect]
     Route: 048
     Dates: start: 19980514, end: 20080301
  9. CALCIUM (UNSPECIFIED) AND VITAMIN D (UNSPECIFIED) [Concomitant]
     Route: 065
  10. FOSAMAX [Suspect]
     Route: 048
     Dates: start: 20020618, end: 20101018
  11. OXYCODONE [Concomitant]
     Route: 065
     Dates: start: 20101201
  12. FOLIC ACID [Concomitant]
     Route: 065
  13. ZOMIG [Concomitant]
     Route: 065
  14. FOSAMAX [Suspect]
     Route: 048
     Dates: start: 20080312, end: 20100826
  15. ASACOL [Concomitant]
     Indication: CROHN'S DISEASE
     Route: 048
     Dates: start: 19950101
  16. EXCEDRIN (MIGRAINE) [Concomitant]
     Route: 065
  17. ALENDRONATE SODIUM [Suspect]
     Indication: OSTEOPOROSIS
     Route: 048
     Dates: start: 20080312, end: 20101001

REACTIONS (31)
  - NAUSEA [None]
  - HAEMOGLOBIN DECREASED [None]
  - OSTEOARTHRITIS [None]
  - LIMB INJURY [None]
  - DIARRHOEA [None]
  - POLYP COLORECTAL [None]
  - COLITIS [None]
  - METASTASES TO BONE [None]
  - PERIODONTAL DISEASE [None]
  - HAEMATOCHEZIA [None]
  - DEVICE FAILURE [None]
  - VOMITING [None]
  - OESTROGEN DEFICIENCY [None]
  - LOW TURNOVER OSTEOPATHY [None]
  - HEPATIC CYST [None]
  - ARTHRITIS [None]
  - HAEMORRHOIDS [None]
  - SINUS DISORDER [None]
  - HYPOKALAEMIA [None]
  - FOOT FRACTURE [None]
  - PERIOSTITIS [None]
  - OSTEOPENIA [None]
  - BLOOD CHOLESTEROL INCREASED [None]
  - MUSCLE SPASMS [None]
  - FALL [None]
  - MENISCUS LESION [None]
  - ENDOMETRIAL CANCER [None]
  - FEMUR FRACTURE [None]
  - BONE DISORDER [None]
  - WOUND HAEMORRHAGE [None]
  - POLYP [None]
